FAERS Safety Report 10225299 (Version 4)
Quarter: 2014Q2

REPORT INFORMATION
  Report Type: Report from Study
  Country: CA (occurrence: CA)
  Receive Date: 20140609
  Receipt Date: 20140618
  Transmission Date: 20141212
  Serious: Yes (Other)
  Sender: FDA-Public Use
  Company Number: CA-009507513-0902USA03479

PATIENT
  Age: 57 Year
  Sex: Male
  Weight: 90 kg

DRUGS (7)
  1. SIMVASTATIN [Suspect]
     Indication: ACUTE CORONARY SYNDROME
     Dosage: 40 MG, QD
     Route: 048
     Dates: start: 20060621
  2. ASPIRIN [Concomitant]
     Dosage: DAILY DOSE: 325 MG
     Route: 048
     Dates: start: 20060606
  3. METOPROLOL [Concomitant]
     Dosage: DAILY DOSE: 50 MG
     Route: 048
     Dates: start: 20060606
  4. IMOVANE [Concomitant]
     Dosage: ONE DAILY
     Route: 048
     Dates: start: 20070601
  5. ATACAND [Concomitant]
     Dosage: DAILY DOSE: 8 MG
     Route: 048
     Dates: start: 20070606
  6. UBIDECARENONE [Concomitant]
     Dosage: DAILY DOSE: 100 MG
     Route: 048
     Dates: start: 20080215
  7. VITAMINS (UNSPECIFIED) [Concomitant]
     Dosage: DAILY DOSE: ONE
     Route: 048
     Dates: start: 20080215

REACTIONS (2)
  - Huerthle cell carcinoma [Not Recovered/Not Resolved]
  - Prostate cancer [Not Recovered/Not Resolved]
